FAERS Safety Report 8946979 (Version 1)
Quarter: 2012Q4

REPORT INFORMATION
  Report Type: Report from Study
  Country: US (occurrence: US)
  Receive Date: 20121205
  Receipt Date: 20121205
  Transmission Date: 20130627
  Serious: Yes (Hospitalization)
  Sender: FDA-Public Use
  Company Number: US-PFIZER INC-2012300069

PATIENT
  Age: 48 Year
  Sex: Female

DRUGS (12)
  1. DOXORUBICIN HCL [Suspect]
     Indication: BREAST CANCER
     Dosage: UNK
     Route: 042
     Dates: start: 20030716, end: 20030917
  2. CYCLOPHOSPHAMIDE [Suspect]
     Indication: BREAST CANCER
     Dosage: UNK
     Dates: start: 20030716, end: 20030917
  3. DOCETAXEL [Suspect]
     Indication: BREAST CANCER
     Dosage: 153 mg, every 3 weeks
     Route: 042
     Dates: start: 20031009, end: 20031210
  4. TRASTUZUMAB [Suspect]
     Indication: BREAST CANCER
     Dosage: LOADING DOSE 224mg
     Route: 042
     Dates: start: 20031008, end: 20031008
  5. TRASTUZUMAB [Suspect]
     Dosage: MAINTENANCE DOSE 112 mg, 1 in 1 wk
     Route: 042
     Dates: start: 20031015, end: 20040616
  6. NEUPOGEN [Suspect]
     Dosage: 480 IU, UNK
     Route: 058
  7. COMPAZINE [Concomitant]
     Dosage: UNK
     Dates: start: 20030714
  8. ZOFRAN [Concomitant]
     Dosage: UNK
     Dates: start: 20030714
  9. VICODIN [Concomitant]
     Dosage: UNK
     Dates: start: 20031013
  10. DECADRON [Concomitant]
     Dosage: UNK
     Dates: start: 20031008, end: 20031010
  11. NEXIUM [Concomitant]
     Dosage: UNK
     Dates: start: 20031017
  12. NYSTATIN [Concomitant]
     Dosage: UNK
     Dates: start: 20031017

REACTIONS (4)
  - Febrile neutropenia [Recovered/Resolved]
  - Cardiac failure congestive [Recovered/Resolved with Sequelae]
  - Urinary tract infection [Unknown]
  - Cardiac failure congestive [Unknown]
